FAERS Safety Report 22161140 (Version 1)
Quarter: 2023Q1

REPORT INFORMATION
  Report Type: Other
  Country: None (occurrence: CN)
  Receive Date: 20230331
  Receipt Date: 20230331
  Transmission Date: 20230418
  Serious: Yes (Other)
  Sender: FDA-Public Use
  Company Number: CN-B.Braun Medical Inc.-2139766

PATIENT
  Age: 31 Year
  Sex: Female
  Weight: 52.5 kg

DRUGS (1)
  1. HEPARIN SODIUM IN DEXTROSE [Suspect]
     Active Substance: HEPARIN SODIUM
     Indication: Anticoagulant therapy
     Route: 042

REACTIONS (3)
  - Antithrombin III decreased [Recovered/Resolved]
  - Thrombocytopenia [Recovered/Resolved]
  - Exposure during pregnancy [Recovered/Resolved]
